FAERS Safety Report 6673165-9 (Version None)
Quarter: 2010Q2

REPORT INFORMATION
  Report Type: 
  Country: None (occurrence: None)
  Receive Date: 20100408
  Receipt Date: 20100330
  Transmission Date: 20101027
  Serious: Yes (Hospitalization)
  Sender: FDA-Public Use
  Company Number: US-JNJFOC-20100400463

PATIENT
  Age: 76 Year
  Sex: Male
  Weight: 127.01 kg

DRUGS (15)
  1. TYLENOL [Suspect]
     Indication: PYREXIA
     Route: 048
  2. TYLENOL [Suspect]
     Indication: ARTHRITIS
     Route: 048
  3. DILTIAZEM HCL [Concomitant]
     Indication: CARDIAC DISORDER
  4. ESTER C [Concomitant]
     Indication: MEDICAL DIET
  5. GLYBURIDE [Concomitant]
     Indication: DIABETES MELLITUS
  6. ISORBIDE [Concomitant]
     Indication: HYPERTENSION
  7. LASIX [Concomitant]
     Indication: CARDIAC DISORDER
  8. LISINOPRIL [Concomitant]
     Indication: HYPERTENSION
  9. METOPROLOL SUCCINATE [Concomitant]
     Indication: HYPERTENSION
  10. COUMADIN [Concomitant]
     Indication: ANTICOAGULANT THERAPY
  11. MULTI-VITAMINS [Concomitant]
     Indication: NUTRITIONAL SUPPORT
  12. PRAVASTATIN [Concomitant]
     Indication: BLOOD CHOLESTEROL ABNORMAL
  13. CHOLESTOFF [Concomitant]
     Indication: BLOOD CHOLESTEROL ABNORMAL
  14. TRAMADOL HCL [Concomitant]
     Indication: PAIN
  15. CALTRATE [Concomitant]
     Indication: MINERAL SUPPLEMENTATION

REACTIONS (2)
  - DIARRHOEA [None]
  - PRODUCT QUALITY ISSUE [None]
